FAERS Safety Report 4810260-0 (Version None)
Quarter: 2005Q4

REPORT INFORMATION
  Report Type: 
  Country: None (occurrence: None)
  Receive Date: 20051026
  Receipt Date: 20051017
  Transmission Date: 20060501
  Serious: Yes (Life-Threatening)
  Sender: FDA-Public Use
  Company Number: 200513374FR

PATIENT
  Age: 96 Year
  Sex: Female

DRUGS (6)
  1. LOVENOX [Suspect]
  2. RYTHMOL [Suspect]
  3. ALLOPURINOL [Suspect]
  4. AUGMENTIN '125' [Suspect]
  5. LOXEN [Suspect]
  6. CETIRIZINE HCL [Suspect]

REACTIONS (1)
  - AGRANULOCYTOSIS [None]
